FAERS Safety Report 20492950 (Version 1)
Quarter: 2022Q1

REPORT INFORMATION
  Report Type: Spontaneous
  Country: GB (occurrence: GB)
  Receive Date: 20220219
  Receipt Date: 20220219
  Transmission Date: 20220423
  Serious: Yes (Other)
  Sender: FDA-Public Use
  Company Number: None

PATIENT
  Age: 39 Year
  Sex: Female
  Weight: 68 kg

DRUGS (4)
  1. DOXYCYCLINE [Suspect]
     Active Substance: DOXYCYCLINE
     Indication: Lower respiratory tract infection
     Dosage: 100 MG
     Route: 048
     Dates: start: 20220128, end: 20220203
  2. DOXYCYCLINE [Suspect]
     Active Substance: DOXYCYCLINE
     Indication: Sinusitis
  3. LEMSIP [Concomitant]
  4. ECHINAFORCE [Concomitant]

REACTIONS (11)
  - Headache [Recovering/Resolving]
  - Dyspepsia [Recovering/Resolving]
  - Nausea [Recovering/Resolving]
  - Vomiting [Recovering/Resolving]
  - Arthralgia [Recovering/Resolving]
  - Anxiety [Recovering/Resolving]
  - Arthralgia [Recovering/Resolving]
  - Neck pain [Recovering/Resolving]
  - Dizziness [Recovering/Resolving]
  - Lymph node pain [Recovering/Resolving]
  - Dizziness [Unknown]

NARRATIVE: CASE EVENT DATE: 20220128
